FAERS Safety Report 8260413-7 (Version None)
Quarter: 2012Q2

REPORT INFORMATION
  Report Type: 
  Country: None (occurrence: None)
  Receive Date: 20120404
  Receipt Date: 20120328
  Transmission Date: 20120825
  Serious: Yes (Other)
  Sender: FDA-Public Use
  Company Number: PHHY2012IT027527

PATIENT
  Sex: Female

DRUGS (1)
  1. AMOXICILLIN [Suspect]
     Indication: OROPHARYNGEAL PAIN
     Dosage: ONE POSOLOGIC UNIT
     Route: 048
     Dates: start: 20120326, end: 20120326

REACTIONS (5)
  - NAUSEA [None]
  - PRURITUS [None]
  - ERYTHEMA [None]
  - ABDOMINAL PAIN UPPER [None]
  - VOMITING [None]
